FAERS Safety Report 7183950-5 (Version None)
Quarter: 2010Q4

REPORT INFORMATION
  Report Type: 
  Country: None (occurrence: None)
  Receive Date: 20101222
  Receipt Date: 20101221
  Transmission Date: 20110411
  Serious: Yes (Hospitalization)
  Sender: FDA-Public Use
  Company Number: RU-SANOFI-AVENTIS-2010SA070890

PATIENT
  Age: 46 Year
  Sex: Male

DRUGS (4)
  1. PLAVIX [Suspect]
     Route: 048
     Dates: start: 20100915, end: 20101116
  2. CONCOR [Concomitant]
     Route: 048
     Dates: start: 20100915, end: 20101116
  3. ACETYLSALICYLIC ACID/MAGNESIUM [Concomitant]
     Route: 048
     Dates: start: 20100915, end: 20101116
  4. SIMVASTATIN [Concomitant]
     Route: 048
     Dates: start: 20100915, end: 20101116

REACTIONS (5)
  - ASTHENIA [None]
  - CHEST PAIN [None]
  - FAECES DISCOLOURED [None]
  - GASTRIC ULCER [None]
  - GASTROINTESTINAL HAEMORRHAGE [None]
